FAERS Safety Report 6341115-0 (Version None)
Quarter: 2009Q3

REPORT INFORMATION
  Report Type: 
  Country: None (occurrence: None)
  Receive Date: 20090904
  Receipt Date: 20090311
  Transmission Date: 20100115
  Serious: No
  Sender: FDA-Public Use
  Company Number: A0653381A

PATIENT
  Age: 42 Year
  Sex: Male

DRUGS (6)
  1. REQUIP [Suspect]
     Indication: PARKINSON'S DISEASE
     Dosage: 4MG FOUR TIMES PER DAY
     Route: 048
     Dates: start: 20020128, end: 20060601
  2. AMANTADINE HCL [Concomitant]
  3. STALEVO 100 [Concomitant]
  4. SINEMET [Concomitant]
  5. SELEGILINE HCL [Concomitant]
     Dates: end: 20040301
  6. LEVODOPA [Concomitant]

REACTIONS (1)
  - PATHOLOGICAL GAMBLING [None]
